FAERS Safety Report 6987361-4 (Version None)
Quarter: 2010Q3

REPORT INFORMATION
  Report Type: 
  Country: None (occurrence: None)
  Receive Date: 20100827
  Receipt Date: 20100727
  Transmission Date: 20110219
  Serious: No
  Sender: FDA-Public Use
  Company Number: 016248

PATIENT
  Age: 44 Year
  Sex: Female

DRUGS (2)
  1. LACOSAMIDE [Suspect]
     Indication: CONVULSION
     Dosage: 100 MG BID
  2. TOPAMAX [Suspect]
     Indication: CONVULSION

REACTIONS (2)
  - PAROSMIA [None]
  - PRURITUS [None]
